FAERS Safety Report 19646370 (Version 1)
Quarter: 2021Q3

REPORT INFORMATION
  Report Type: Spontaneous
  Country: DE (occurrence: DE)
  Receive Date: 20210802
  Receipt Date: 20210802
  Transmission Date: 20211014
  Serious: No
  Sender: FDA-Public Use
  Company Number: DE-ALKEM LABORATORIES LIMITED-DE-ALKEM-2020-07250

PATIENT
  Sex: Female
  Weight: 70 kg

DRUGS (2)
  1. CEFUROXIME AXETIL. [Suspect]
     Active Substance: CEFUROXIME AXETIL
     Indication: PRODUCT USED FOR UNKNOWN INDICATION
     Dosage: 500 MILLIGRAM
     Route: 065
     Dates: start: 20200817
  2. PREDNISOLON ACIS 50 MG [Suspect]
     Active Substance: PREDNISOLONE
     Indication: ALLERGY TO ARTHROPOD STING
     Dosage: 1 DOSAGE FORM, QD (EVERY ONE DAY)
     Route: 048
     Dates: start: 20200817

REACTIONS (3)
  - Swelling face [Not Recovered/Not Resolved]
  - Erythema [Not Recovered/Not Resolved]
  - Ocular discomfort [Not Recovered/Not Resolved]

NARRATIVE: CASE EVENT DATE: 20200818
